FAERS Safety Report 14807853 (Version 1)
Quarter: 2018Q2

REPORT INFORMATION
  Report Type: Spontaneous
  Country: CN (occurrence: CN)
  Receive Date: 20180425
  Receipt Date: 20180425
  Transmission Date: 20180711
  Serious: Yes (Hospitalization, Other)
  Sender: FDA-Public Use
  Company Number: CN-MYLANLABS-2018M1027391

PATIENT
  Age: 28 Year
  Sex: Female

DRUGS (8)
  1. FLUOROURACIL. [Suspect]
     Active Substance: FLUOROURACIL
     Indication: CHORIOCARCINOMA
     Dosage: 2 CYCLES
     Route: 065
  2. ETOPOSIDE. [Suspect]
     Active Substance: ETOPOSIDE
     Indication: CHORIOCARCINOMA
     Dosage: PART OF EMA-CO CHEMOTHERAPY REGIMEN
     Route: 065
  3. ALL OTHER THERAPEUTIC PRODUCTS [Suspect]
     Active Substance: UNSPECIFIED INGREDIENT
     Indication: CHORIOCARCINOMA
     Dosage: 2 CYCLES
     Route: 065
  4. ACTINOMYCIN C [Concomitant]
     Active Substance: CACTINOMYCIN
     Indication: CHORIOCARCINOMA
     Dosage: PART OF EMA-CO CHEMOTHERAPY REGIMEN
     Route: 065
  5. CYCLOPHOSPHAMIDE. [Concomitant]
     Active Substance: CYCLOPHOSPHAMIDE
     Indication: CHORIOCARCINOMA
     Dosage: PART OF EMA-CO CHEMOTHERAPY REGIMEN
     Route: 065
  6. ALL OTHER THERAPEUTIC PRODUCTS [Concomitant]
     Active Substance: UNSPECIFIED INGREDIENT
     Indication: CHORIOCARCINOMA
     Dosage: PART OF EMA-CO CHEMOTHERAPY REGIMEN
     Route: 065
  7. METHOTREXATE. [Concomitant]
     Active Substance: METHOTREXATE
     Indication: CHORIOCARCINOMA
     Dosage: PART OF EMA-CO CHEMOTHERAPY REGIMEN
     Route: 065
  8. VINCRISTINE [Concomitant]
     Active Substance: VINCRISTINE
     Indication: CHORIOCARCINOMA
     Dosage: PART OF EMA-CO CHEMOTHERAPY REGIMEN
     Route: 065

REACTIONS (2)
  - Haemolytic anaemia [Unknown]
  - Drug resistance [Unknown]
